FAERS Safety Report 26119252 (Version 1)
Quarter: 2025Q4

REPORT INFORMATION
  Report Type: Spontaneous
  Country: NZ (occurrence: NZ)
  Receive Date: 20251204
  Receipt Date: 20251204
  Transmission Date: 20260117
  Serious: Yes (Other)
  Sender: BAXTER
  Company Number: NZ-MLMSERVICE-20251121-PI721887-00101-1

PATIENT
  Age: 21 Year
  Sex: Male

DRUGS (18)
  1. IFOSFAMIDE [Suspect]
     Active Substance: IFOSFAMIDE
     Indication: Testis cancer
     Dosage: CYCLE ONE OF CHEMOTHERAPY (CISPLATIN, ETOPOSIDE AND IFOSFAMIDE WITH DEXAMETHASONE)
     Route: 065
  2. IFOSFAMIDE [Suspect]
     Active Substance: IFOSFAMIDE
     Indication: Metastases to lung
  3. IFOSFAMIDE [Suspect]
     Active Substance: IFOSFAMIDE
     Indication: Metastases to liver
  4. IFOSFAMIDE [Suspect]
     Active Substance: IFOSFAMIDE
     Indication: Testicular choriocarcinoma
  5. CISPLATIN [Suspect]
     Active Substance: CISPLATIN
     Indication: Testis cancer
     Dosage: CYCLE ONE OF CHEMOTHERAPY (CISPLATIN, ETOPOSIDE AND IFOSFAMIDE WITH DEXAMETHASONE)
     Route: 065
  6. CISPLATIN [Suspect]
     Active Substance: CISPLATIN
     Indication: Testicular choriocarcinoma
  7. CISPLATIN [Suspect]
     Active Substance: CISPLATIN
     Indication: Metastases to lung
  8. CISPLATIN [Suspect]
     Active Substance: CISPLATIN
     Indication: Metastases to liver
  9. ETOPOSIDE [Suspect]
     Active Substance: ETOPOSIDE
     Indication: Testicular choriocarcinoma
     Dosage: CYCLE ONE OF CHEMOTHERAPY (CISPLATIN, ETOPOSIDE AND IFOSFAMIDE WITH DEXAMETHASONE)
     Route: 065
  10. ETOPOSIDE [Suspect]
     Active Substance: ETOPOSIDE
     Indication: Testis cancer
  11. ETOPOSIDE [Suspect]
     Active Substance: ETOPOSIDE
     Indication: Metastases to lung
  12. ETOPOSIDE [Suspect]
     Active Substance: ETOPOSIDE
     Indication: Metastases to liver
  13. DEXAMETHASONE [Suspect]
     Active Substance: DEXAMETHASONE
     Indication: Testicular choriocarcinoma
     Dosage: CYCLE ONE OF CHEMOTHERAPY (CISPLATIN, ETOPOSIDE AND IFOSFAMIDE WITH DEXAMETHASONE)
     Route: 065
  14. DEXAMETHASONE [Suspect]
     Active Substance: DEXAMETHASONE
     Indication: Testis cancer
  15. DEXAMETHASONE [Suspect]
     Active Substance: DEXAMETHASONE
     Indication: Metastases to liver
  16. DEXAMETHASONE [Suspect]
     Active Substance: DEXAMETHASONE
     Indication: Metastases to lung
  17. CARBIMAZOLE [Concomitant]
     Active Substance: CARBIMAZOLE
     Indication: Hyperthyroidism
     Dosage: UNK
     Route: 065
  18. IODINE\POTASSIUM IODIDE [Concomitant]
     Active Substance: IODINE\POTASSIUM IODIDE
     Indication: Hyperthyroidism
     Dosage: UNK
     Route: 065

REACTIONS (2)
  - Respiratory distress [Unknown]
  - Neutropenia [Unknown]
